FAERS Safety Report 12280549 (Version 1)
Quarter: 2016Q2

REPORT INFORMATION
  Report Type: Spontaneous
  Country: US (occurrence: None)
  Receive Date: 20160418
  Receipt Date: 20160418
  Transmission Date: 20160815
  Serious: No
  Sender: FDA-Public Use
  Company Number: None

PATIENT
  Age: 40 Year
  Sex: Female
  Weight: 61.24 kg

DRUGS (2)
  1. HYQVIA [Suspect]
     Active Substance: HUMAN IMMUNOGLOBULIN G\HYALURONIDASE RECOMBINANT HUMAN
     Indication: IMMUNODEFICIENCY COMMON VARIABLE
     Dosage: 25 G EVERY 3-4 WEEKS SUBCUTANEOUS
     Route: 058
     Dates: start: 20160409, end: 20160409
  2. HYQVIA [Suspect]
     Active Substance: HUMAN IMMUNOGLOBULIN G\HYALURONIDASE RECOMBINANT HUMAN
     Indication: IMMUNODEFICIENCY COMMON VARIABLE
     Dosage: 25 G EVERY 3-4 WEEKS SUBCUTANEOUS
     Route: 058
     Dates: start: 20160409, end: 20160409

REACTIONS (1)
  - Swelling [None]

NARRATIVE: CASE EVENT DATE: 20160414
